FAERS Safety Report 19938927 (Version 2)
Quarter: 2025Q4

REPORT INFORMATION
  Report Type: Spontaneous
  Country: US (occurrence: US)
  Receive Date: 20211011
  Receipt Date: 20251124
  Transmission Date: 20260118
  Serious: Yes (Other)
  Sender: QILU PHARMACEUTICAL
  Company Number: None

PATIENT
  Age: 54 Year
  Sex: Female

DRUGS (7)
  1. OXALIPLATIN [Suspect]
     Active Substance: OXALIPLATIN
     Indication: Adenocarcinoma of colon
     Dosage: 85 MG/M2, TWICE WEEKLY
     Route: 065
     Dates: start: 2016
  2. OXALIPLATIN [Suspect]
     Active Substance: OXALIPLATIN
     Dosage: 85 MG/M2 BI-WEEKLY
     Route: 065
     Dates: start: 201812
  3. FLUOROURACIL [Suspect]
     Active Substance: FLUOROURACIL
     Indication: Adenocarcinoma of colon
     Dosage: 400 MG/M2, TWICE WEEKLY
     Route: 065
     Dates: start: 2016
  4. FLUOROURACIL [Suspect]
     Active Substance: FLUOROURACIL
     Dosage: 2400 MG/M2 TWICE WEEKLY
     Route: 065
     Dates: start: 2016
  5. FLUOROURACIL [Suspect]
     Active Substance: FLUOROURACIL
     Dosage: 2400 MG/M2 TWICE WEEKLY
     Route: 065
     Dates: start: 201812, end: 2019
  6. LEUCOVORIN CALCIUM [Suspect]
     Active Substance: LEUCOVORIN CALCIUM
     Indication: Adenocarcinoma of colon
     Dosage: 400 MG/M2, TWICE WEEKLY
     Route: 065
     Dates: start: 2016
  7. BEVACIZUMAB [Suspect]
     Active Substance: BEVACIZUMAB
     Indication: Adenocarcinoma of colon
     Dosage: 5 MG/M2 TWICE WEEKLY
     Route: 065
     Dates: start: 201812, end: 2019

REACTIONS (3)
  - Cytopenia [Unknown]
  - Neutropenia [Recovered/Resolved]
  - Mucosal inflammation [Unknown]

NARRATIVE: CASE EVENT DATE: 20180101
